FAERS Safety Report 18050564 (Version 1)
Quarter: 2020Q3

REPORT INFORMATION
  Report Type: Report from Study
  Country: US (occurrence: US)
  Receive Date: 20200721
  Receipt Date: 20200721
  Transmission Date: 20201103
  Serious: Yes (Hospitalization, Other)
  Sender: FDA-Public Use
  Company Number: US-EISAI MEDICAL RESEARCH-EC-2020-073927

PATIENT
  Age: 74 Year
  Sex: Female

DRUGS (4)
  1. LENVIMA [Suspect]
     Active Substance: LENVATINIB
     Route: 048
     Dates: start: 20200604, end: 2020
  2. LENVIMA [Suspect]
     Active Substance: LENVATINIB
     Indication: SALIVARY GLAND CANCER
     Route: 048
     Dates: start: 20191226, end: 20200602
  3. LENVIMA [Suspect]
     Active Substance: LENVATINIB
     Route: 048
     Dates: start: 2020
  4. LENVIMA [Suspect]
     Active Substance: LENVATINIB
     Dosage: TOOK ONLY 2 CAPSULES INSTEAD OF 3
     Route: 048
     Dates: start: 20200603, end: 20200603

REACTIONS (27)
  - Back pain [Not Recovered/Not Resolved]
  - Headache [Not Recovered/Not Resolved]
  - Gastrooesophageal reflux disease [Not Recovered/Not Resolved]
  - Product use in unapproved indication [Unknown]
  - Constipation [Recovered/Resolved]
  - Hypothyroidism [Not Recovered/Not Resolved]
  - Hyponatraemia [Not Recovered/Not Resolved]
  - Cardiac valve disease [Not Recovered/Not Resolved]
  - Intervertebral disc disorder [Not Recovered/Not Resolved]
  - Stomatitis [Not Recovered/Not Resolved]
  - Oral pain [Not Recovered/Not Resolved]
  - Abdominal pain [Recovering/Resolving]
  - Malignant neoplasm progression [Not Recovered/Not Resolved]
  - Gait disturbance [Not Recovered/Not Resolved]
  - Pain [Not Recovered/Not Resolved]
  - Diabetes mellitus [Not Recovered/Not Resolved]
  - Hypercholesterolaemia [Not Recovered/Not Resolved]
  - Accidental underdose [Unknown]
  - Hypertension [Unknown]
  - Nausea [Recovering/Resolving]
  - Memory impairment [Not Recovered/Not Resolved]
  - Hypomagnesaemia [Not Recovered/Not Resolved]
  - Anaemia [Recovering/Resolving]
  - Fatigue [Not Recovered/Not Resolved]
  - Toothache [Not Recovered/Not Resolved]
  - Muscle spasms [Not Recovered/Not Resolved]
  - Drug ineffective [Unknown]

NARRATIVE: CASE EVENT DATE: 20191226
